FAERS Safety Report 4682991-7 (Version None)
Quarter: 2005Q2

REPORT INFORMATION
  Report Type: 
  Country: None (occurrence: None)
  Receive Date: 20050602
  Receipt Date: 20050315
  Transmission Date: 20051028
  Serious: No
  Sender: FDA-Public Use
  Company Number: USA050393450

PATIENT
  Age: 53 Year
  Sex: Female

DRUGS (5)
  1. CYMBALTA [Suspect]
     Dosage: 30 MG
     Dates: start: 20050309
  2. PROZAC [Concomitant]
  3. LORAZEPAM [Concomitant]
  4. GABATRIL (TIAGABINE HYDROCHLORIDE) [Concomitant]
  5. CLONAZEPAM [Concomitant]

REACTIONS (3)
  - BLOOD URINE PRESENT [None]
  - DYSURIA [None]
  - URINARY RETENTION [None]
